FAERS Safety Report 18253399 (Version 2)
Quarter: 2020Q4

REPORT INFORMATION
  Report Type: Report from Study
  Country: IT (occurrence: IT)
  Receive Date: 20200910
  Receipt Date: 20201130
  Transmission Date: 20210113
  Serious: Yes (Hospitalization, Other)
  Sender: FDA-Public Use
  Company Number: IT-PFIZER INC-2020349403

PATIENT
  Age: 66 Year
  Sex: Male
  Weight: 62 kg

DRUGS (10)
  1. ENCORAFENIB [Suspect]
     Active Substance: ENCORAFENIB
     Indication: COLON CANCER METASTATIC
     Dosage: 300 MG, 1X/DAY
     Route: 048
     Dates: start: 20200807, end: 20200814
  2. PURSENNIDE [SENNOSIDE A+B CALCIUM] [Concomitant]
     Indication: CONSTIPATION
     Dosage: 12 MG
     Route: 065
     Dates: start: 20190710
  3. DELTACORTENE [Concomitant]
     Active Substance: PREDNISONE
     Dosage: UNK UNK, UNKNOWN
     Route: 065
  4. LANSOPRAZOLE. [Concomitant]
     Active Substance: LANSOPRAZOLE
     Dosage: UNK, UNKNOWN
     Route: 065
  5. ERBITUX [Suspect]
     Active Substance: CETUXIMAB
     Dosage: 434 MG, CYCLIC
     Route: 042
     Dates: start: 20200814
  6. MOVICOL [Concomitant]
     Active Substance: POLYETHYLENE GLYCOL 3350\POTASSIUM CHLORIDE\SODIUM BICARBONATE\SODIUM CHLORIDE
     Indication: CONSTIPATION
     Dosage: 13.8 G
     Route: 065
     Dates: start: 20190710
  7. PALEXIA [Concomitant]
     Active Substance: TAPENTADOL HYDROCHLORIDE
     Indication: PAIN
     Dosage: 150 MG
     Route: 065
     Dates: start: 20200624
  8. ERBITUX [Suspect]
     Active Substance: CETUXIMAB
     Indication: COLON CANCER METASTATIC
     Dosage: 650 MG, CYCLIC
     Route: 042
     Dates: start: 20200807
  9. SELEPARINA [Concomitant]
     Active Substance: NADROPARIN CALCIUM
     Indication: PROPHYLAXIS
     Dosage: 0.6 ML
     Route: 065
     Dates: start: 20200708
  10. EUTIROX [Concomitant]
     Active Substance: LEVOTHYROXINE SODIUM
     Indication: HYPOTHYROIDISM
     Dosage: 100 UG
     Route: 065

REACTIONS (1)
  - Syncope [Recovered/Resolved with Sequelae]

NARRATIVE: CASE EVENT DATE: 20200814
